FAERS Safety Report 7607763-2 (Version None)
Quarter: 2011Q3

REPORT INFORMATION
  Report Type: 
  Country: None (occurrence: None)
  Receive Date: 20110713
  Receipt Date: 20110608
  Transmission Date: 20111222
  Serious: No
  Sender: FDA-Public Use
  Company Number: PHHY2011AU48511

PATIENT
  Sex: Female

DRUGS (4)
  1. NEXIUM [Concomitant]
  2. VITAMIN TAB [Concomitant]
  3. ZOLEDRONOC ACID [Suspect]
     Indication: OSTEOPOROSIS
     Dosage: 5 MG,
     Route: 042
     Dates: start: 20110217
  4. PANAMAX [Concomitant]

REACTIONS (2)
  - DENTAL CARIES [None]
  - SENSITIVITY OF TEETH [None]
